FAERS Safety Report 8455511-9 (Version None)
Quarter: 2012Q2

REPORT INFORMATION
  Report Type: 
  Country: None (occurrence: None)
  Receive Date: 20120621
  Receipt Date: 20120614
  Transmission Date: 20120825
  Serious: Yes (Other)
  Sender: FDA-Public Use
  Company Number: GB-JNJFOC-20111204423

PATIENT
  Sex: Female

DRUGS (5)
  1. SIMPONI [Suspect]
     Indication: PRODUCT USED FOR UNKNOWN INDICATION
     Route: 058
     Dates: start: 20120320
  2. SIMPONI [Suspect]
     Route: 058
  3. SIMPONI [Suspect]
     Route: 058
     Dates: start: 20120520
  4. SIMPONI [Suspect]
     Route: 058
     Dates: start: 20111117
  5. SIMPONI [Suspect]
     Route: 058
     Dates: start: 20120420

REACTIONS (17)
  - PAIN [None]
  - PYREXIA [None]
  - DEHYDRATION [None]
  - DRY MOUTH [None]
  - HEADACHE [None]
  - MALAISE [None]
  - NAUSEA [None]
  - DECREASED APPETITE [None]
  - FATIGUE [None]
  - EYE PAIN [None]
  - CHROMATURIA [None]
  - LIVER FUNCTION TEST ABNORMAL [None]
  - NIGHT SWEATS [None]
  - FLUSHING [None]
  - PRODUCTIVE COUGH [None]
  - MOBILITY DECREASED [None]
  - HYPERHIDROSIS [None]
